FAERS Safety Report 19489369 (Version 2)
Quarter: 2022Q2

REPORT INFORMATION
  Report Type: Spontaneous
  Country: DK (occurrence: DK)
  Receive Date: 20210703
  Receipt Date: 20220628
  Transmission Date: 20220720
  Serious: Yes (Life-Threatening, Hospitalization, Disabling)
  Sender: FDA-Public Use
  Company Number: None

PATIENT
  Age: 40 Year
  Sex: Male

DRUGS (4)
  1. ETOPOSIDE [Suspect]
     Active Substance: ETOPOSIDE
     Indication: Testicular cancer metastatic
     Dosage: 1ST LINE OF CHEMO ENDED 30 MAR 2021. 2ND LINE OF CHEMO STARTED 06 APR?2021. STRENGTH: 20 MG / ML
     Route: 042
     Dates: start: 20210315, end: 20210409
  2. CISPLATIN [Suspect]
     Active Substance: CISPLATIN
     Indication: Testicular cancer metastatic
     Dosage: 1ST LINE OF CHEMO ENDED 30 MAR 2021. 2ND LINE OF CHEMO STARTED 06 APR?2021. STRENGTH: 1 MG / ML
     Route: 042
     Dates: start: 20210315, end: 20210409
  3. BLEOMYCIN [Suspect]
     Active Substance: BLEOMYCIN SULFATE
     Indication: Testicular cancer metastatic
     Dosage: 1ST LINE OF CHEMO ENDED 30 MAR 2021. 2ND LINE OF CHEMO STARTED 06 APR?2021. STRENGTH: 15000 IU
     Route: 042
     Dates: start: 20210315, end: 20210409
  4. PANTOPRAZOLE [Concomitant]
     Active Substance: PANTOPRAZOLE
     Indication: Gastrooesophageal reflux disease
     Dates: start: 20210303

REACTIONS (8)
  - Aortic embolus [Recovering/Resolving]
  - Abdominal pain upper [Unknown]
  - Malaise [Unknown]
  - Cerebral thrombosis [Unknown]
  - Mesenteric artery embolism [Recovered/Resolved with Sequelae]
  - Carotid artery thrombosis [Recovering/Resolving]
  - Subclavian vein thrombosis [Unknown]
  - Superior sagittal sinus thrombosis [Unknown]

NARRATIVE: CASE EVENT DATE: 20210401
